FAERS Safety Report 17347968 (Version 1)
Quarter: 2020Q1

REPORT INFORMATION
  Report Type: Report from Study
  Country: US (occurrence: US)
  Receive Date: 20200129
  Receipt Date: 20200129
  Transmission Date: 20200409
  Serious: No
  Sender: FDA-Public Use
  Company Number: US-EXELIXIS-CABO-19025536

PATIENT
  Sex: Female

DRUGS (8)
  1. CABOMETYX [Suspect]
     Active Substance: CABOZANTINIB S-MALATE
     Indication: RENAL CANCER
     Dosage: 40 MG, QD
     Route: 048
     Dates: start: 20190509
  2. DESLORATADINE. [Concomitant]
     Active Substance: DESLORATADINE
  3. FOLIC ACID. [Concomitant]
     Active Substance: FOLIC ACID
  4. TRIAMTERENE + HCTZ [Concomitant]
     Active Substance: HYDROCHLOROTHIAZIDE\TRIAMTERENE
  5. NYSTATIN. [Concomitant]
     Active Substance: NYSTATIN
  6. CEPHALEXIN. [Concomitant]
     Active Substance: CEPHALEXIN
  7. MEGESTROL ACETATE. [Concomitant]
     Active Substance: MEGESTROL ACETATE
  8. TELMISARTAN. [Concomitant]
     Active Substance: TELMISARTAN

REACTIONS (2)
  - Adverse drug reaction [Unknown]
  - Epistaxis [Unknown]
